FAERS Safety Report 25208668 (Version 3)
Quarter: 2025Q2

REPORT INFORMATION
  Report Type: Spontaneous
  Country: GR (occurrence: GR)
  Receive Date: 20250417
  Receipt Date: 20250519
  Transmission Date: 20250717
  Serious: Yes (Life-Threatening, Hospitalization)
  Sender: BOEHRINGER INGELHEIM
  Company Number: GR-BoehringerIngelheim-2025-BI-021457

PATIENT
  Age: 62 Year
  Sex: Male

DRUGS (1)
  1. EMPAGLIFLOZIN [Suspect]
     Active Substance: EMPAGLIFLOZIN
     Indication: Diabetes mellitus

REACTIONS (8)
  - Fournier^s gangrene [Recovered/Resolved]
  - Scrotal oedema [Recovered/Resolved]
  - Systemic scleroderma [Recovered/Resolved]
  - Peritoneal thickening [Recovered/Resolved]
  - Scrotal disorder [Recovered/Resolved]
  - Gait disturbance [Recovered/Resolved]
  - Scrotal pain [Recovered/Resolved]
  - Crepitations [Recovered/Resolved]
